FAERS Safety Report 8083704-1 (Version None)
Quarter: 2012Q1

REPORT INFORMATION
  Report Type: 
  Country: None (occurrence: None)
  Receive Date: 20120127
  Receipt Date: 20110111
  Transmission Date: 20120608
  Serious: No
  Sender: FDA-Public Use
  Company Number: US-ABBOTT-11P-163-0696935-00

PATIENT
  Sex: Male
  Weight: 94.432 kg

DRUGS (4)
  1. HUMIRA [Suspect]
     Indication: PSORIATIC ARTHROPATHY
     Dates: start: 20080101
  2. PRINZIDE [Concomitant]
     Indication: HYPERTENSION
  3. SINGULAIR [Concomitant]
     Indication: HYPERSENSITIVITY
  4. PROCARDIA [Concomitant]
     Indication: HYPERTENSION

REACTIONS (2)
  - EPISTAXIS [None]
  - SINUSITIS [None]
